FAERS Safety Report 5632436-5 (Version None)
Quarter: 2008Q1

REPORT INFORMATION
  Report Type: 
  Country: None (occurrence: None)
  Receive Date: 20080220
  Receipt Date: 20080213
  Transmission Date: 20080703
  Serious: Yes (Other)
  Sender: FDA-Public Use
  Company Number: US-BOEHRINGER INGELHEIM GMBH, GERMANY-2007-BP-25369BP

PATIENT
  Sex: Female

DRUGS (7)
  1. MICARDIS HCT [Suspect]
     Indication: HYPERTENSION
     Route: 048
     Dates: start: 20070801, end: 20070919
  2. ATENOLOL [Concomitant]
     Indication: BLOOD PRESSURE INCREASED
     Route: 048
  3. PREMARIN [Concomitant]
     Indication: HORMONE REPLACEMENT THERAPY
     Route: 048
  4. OMEPRAZOLE [Concomitant]
     Indication: OESOPHAGITIS
     Route: 048
  5. TYLENOL (CAPLET) [Concomitant]
     Indication: PAIN
     Route: 048
  6. ASPIRIN [Concomitant]
  7. OMEGA 3 FISH OIL [Concomitant]

REACTIONS (6)
  - DIZZINESS [None]
  - FEELING HOT [None]
  - HYPERHIDROSIS [None]
  - LOSS OF CONSCIOUSNESS [None]
  - NAUSEA [None]
  - VOMITING [None]
